FAERS Safety Report 12624841 (Version 1)
Quarter: 2016Q3

REPORT INFORMATION
  Report Type: Spontaneous
  Country: US (occurrence: None)
  Receive Date: 20160804
  Receipt Date: 20160804
  Transmission Date: 20161109
  Serious: Yes (Disabling)
  Sender: FDA-Public Use
  Company Number: None

PATIENT
  Age: 75 Year
  Sex: Male
  Weight: 111.13 kg

DRUGS (7)
  1. MELOXICAM. [Concomitant]
     Active Substance: MELOXICAM
  2. LEVAQUIN [Suspect]
     Active Substance: LEVOFLOXACIN
     Indication: PROSTATE INFECTION
     Dosage: IN THE MORNING TAKEN BY MOUTH
     Route: 048
     Dates: start: 20141215, end: 20150108
  3. PROVIGIL [Concomitant]
     Active Substance: MODAFINIL
  4. VITAMINS [Concomitant]
     Active Substance: VITAMINS
  5. LAMICTAL [Concomitant]
     Active Substance: LAMOTRIGINE
  6. DIOVAN [Concomitant]
     Active Substance: VALSARTAN
  7. PRILOSEC [Concomitant]
     Active Substance: OMEPRAZOLE MAGNESIUM

REACTIONS (4)
  - Muscle injury [None]
  - Pain in extremity [None]
  - Tendon disorder [None]
  - Gait disturbance [None]

NARRATIVE: CASE EVENT DATE: 20150102
